FAERS Safety Report 9329469 (Version 4)
Quarter: 2013Q3

REPORT INFORMATION
  Report Type: Report from Study
  Country: FR (occurrence: FR)
  Receive Date: 20130604
  Receipt Date: 20130916
  Transmission Date: 20140515
  Serious: Yes (Hospitalization)
  Sender: FDA-Public Use
  Company Number: FR-GLAXOSMITHKLINE-Z0019663A

PATIENT
  Age: 75 Year
  Sex: Female
  Weight: 54 kg

DRUGS (9)
  1. TRAMETINIB [Suspect]
     Indication: MALIGNANT MELANOMA
     Dosage: 2MG PER DAY
     Route: 048
     Dates: start: 20120929
  2. DABRAFENIB [Suspect]
     Indication: MALIGNANT MELANOMA
     Dosage: 75MG TWICE PER DAY
     Route: 048
     Dates: start: 20120929
  3. SOLUPRED [Concomitant]
     Indication: PYREXIA
     Dosage: 20MG PER DAY
     Route: 048
     Dates: start: 20130118
  4. LYSANXIA [Concomitant]
     Indication: DEPRESSION
     Dosage: 10MG PER DAY
     Route: 048
     Dates: start: 198901
  5. PROZAC [Concomitant]
     Indication: DEPRESSION
     Dosage: 1TAB PER DAY
     Route: 048
     Dates: start: 198901
  6. CETIRIZINE [Concomitant]
     Indication: IODINE ALLERGY
     Dosage: 10MG PER DAY
     Route: 048
     Dates: start: 20130506, end: 20130507
  7. CORTANCYL [Concomitant]
     Indication: IODINE ALLERGY
     Dosage: 20MG PER DAY
     Route: 048
     Dates: start: 20130506, end: 20130507
  8. DIFFU-K [Concomitant]
     Indication: HYPOKALAEMIA
     Dosage: 1000MG TWICE PER DAY
     Route: 048
     Dates: start: 20130509, end: 20130510
  9. BICARBONATES + FUNGIZONE [Concomitant]
     Indication: APHTHOUS STOMATITIS
     Dosage: 1APP FOUR TIMES PER DAY
     Route: 061
     Dates: start: 20130506, end: 20130516

REACTIONS (1)
  - Confusional state [Recovered/Resolved]
